FAERS Safety Report 19294790 (Version 2)
Quarter: 2021Q2

REPORT INFORMATION
  Report Type: Spontaneous
  Country: US (occurrence: US)
  Receive Date: 20210524
  Receipt Date: 20210622
  Transmission Date: 20210717
  Serious: Yes (Other)
  Sender: FDA-Public Use
  Company Number: US-BAYER-2021-145848

PATIENT
  Age: 15 Year
  Sex: Female
  Weight: 55.3 kg

DRUGS (2)
  1. KYLEENA [Suspect]
     Active Substance: LEVONORGESTREL
     Indication: HEAVY MENSTRUAL BLEEDING
  2. KYLEENA [Suspect]
     Active Substance: LEVONORGESTREL
     Indication: CONTRACEPTION
     Dosage: 17.5  ?G PER DAY, CONTINUOUSLY
     Route: 015
     Dates: start: 20210318, end: 20210503

REACTIONS (3)
  - Genital haemorrhage [Recovered/Resolved]
  - Abdominal pain [Recovered/Resolved]
  - Device expulsion [Recovered/Resolved]

NARRATIVE: CASE EVENT DATE: 20210503
